FAERS Safety Report 5051239-6 (Version None)
Quarter: 2006Q3

REPORT INFORMATION
  Report Type: 
  Country: None (occurrence: None)
  Receive Date: 20060710
  Receipt Date: 20060702
  Transmission Date: 20061208
  Serious: Yes (Hospitalization)
  Sender: FDA-Public Use
  Company Number: 2006-07-0189

PATIENT
  Age: 50 Year
  Sex: Female

DRUGS (5)
  1. PEG-INTRON [Suspect]
     Indication: HEPATITIS C
     Dosage: SUBCUTANEOUS
     Route: 058
     Dates: start: 20060526
  2. REBETOL [Suspect]
     Indication: HEPATITIS C
     Dosage: ORAL
     Route: 048
     Dates: start: 20060526
  3. DARVOCET-N 100 [Concomitant]
  4. KLONOPIN [Concomitant]
  5. SEROQUEL [Concomitant]

REACTIONS (10)
  - ASTHENIA [None]
  - BLOOD COUNT ABNORMAL [None]
  - BLOOD PRESSURE DECREASED [None]
  - HEART RATE DECREASED [None]
  - MENORRHAGIA [None]
  - NAUSEA [None]
  - ORAL INTAKE REDUCED [None]
  - PANCREATIC DISORDER [None]
  - PLATELET COUNT DECREASED [None]
  - SWELLING [None]
